FAERS Safety Report 9630049 (Version 3)
Quarter: 2014Q2

REPORT INFORMATION
  Report Type: Spontaneous
  Country: US (occurrence: US)
  Receive Date: 20131017
  Receipt Date: 20140411
  Transmission Date: 20141212
  Serious: Yes (Hospitalization, Other)
  Sender: FDA-Public Use
  Company Number: US-B.I. PHARMACEUTICALS,INC./RIDGEFIELD-2013-BI-32815BP

PATIENT
  Age: 72 Year
  Sex: Female
  Weight: 73.48 kg

DRUGS (15)
  1. PRADAXA [Suspect]
     Indication: ATRIAL FIBRILLATION
     Dosage: 300 MG
     Route: 065
     Dates: start: 201103, end: 20111011
  2. OMEPRAZOLE [Concomitant]
     Dosage: 40 MG
     Route: 065
  3. TRAMADOL [Concomitant]
     Route: 065
  4. LOTENSIN [Concomitant]
     Dosage: 20 MG
     Route: 065
  5. FUROSEMIDE [Concomitant]
     Route: 065
  6. ATENOLOL [Concomitant]
     Route: 065
  7. LANTUS [Concomitant]
     Route: 058
  8. PROAIR HFA [Concomitant]
     Route: 065
  9. ASPIRIN [Concomitant]
     Dosage: 81 MG
     Route: 065
  10. LIPITOR [Concomitant]
     Route: 065
  11. CHILDRENS VITAMINS WITH IRON [Concomitant]
     Route: 065
  12. ACETAMINOPHEN [Concomitant]
     Route: 065
  13. HUMALOG [Concomitant]
     Route: 065
  14. PROPAFENONE [Concomitant]
     Dosage: 300 MG
     Route: 065
  15. SUCRALFATE [Concomitant]
     Dosage: 2 G
     Route: 065

REACTIONS (5)
  - Gastrointestinal haemorrhage [Recovered/Resolved]
  - Coagulopathy [Unknown]
  - Intestinal ischaemia [Unknown]
  - Myocardial infarction [Unknown]
  - Pharyngeal haemorrhage [Unknown]
